FAERS Safety Report 8484336-3 (Version None)
Quarter: 2012Q3

REPORT INFORMATION
  Report Type: 
  Country: None (occurrence: None)
  Receive Date: 20120703
  Receipt Date: 20120626
  Transmission Date: 20120928
  Serious: Yes (Hospitalization, Other)
  Sender: FDA-Public Use
  Company Number: PHHY2010JP82705

PATIENT
  Sex: Female
  Weight: 58 kg

DRUGS (17)
  1. LOCOID [Concomitant]
     Dosage: UNK
     Route: 061
     Dates: start: 20100709
  2. EXJADE [Suspect]
     Dosage: 250 MG, DAILY
     Route: 048
     Dates: start: 20100612, end: 20100716
  3. EXJADE [Suspect]
     Dosage: 375 MG, DAILY
     Route: 048
     Dates: start: 20100717, end: 20100902
  4. EXJADE [Suspect]
     Dosage: 500 MG, DAILY
     Route: 048
     Dates: start: 20100903
  5. MUCOSTA [Concomitant]
     Dosage: 300 MG, UNK
     Route: 048
     Dates: start: 20100409, end: 20100506
  6. DORIPENEM MONOHYDRATE [Concomitant]
     Dosage: 250 MG, UNK
     Route: 041
     Dates: start: 20100430
  7. RED BLOOD CELLS, LEUCOCYTE DEPLETED [Concomitant]
     Dosage: 2 U, QW
     Dates: start: 20100903, end: 20110325
  8. EXJADE [Suspect]
     Indication: IRON OVERLOAD
     Dosage: 125 MG, DAILY
     Route: 048
     Dates: start: 20100325, end: 20100331
  9. LOPERAMIDE HYDROCHLORIDE [Concomitant]
     Dosage: 2 DF, UNK
     Route: 048
     Dates: start: 20100528, end: 20100604
  10. EXJADE [Suspect]
     Dosage: 250 MG, DAILY
     Route: 048
     Dates: start: 20100401, end: 20100527
  11. LEVOFLOXACIN [Concomitant]
     Dosage: 1 DF, UNK
     Route: 048
     Dates: start: 20100507
  12. CEFAZOLIN SODIUM [Concomitant]
     Dosage: 3 DF, UNK
     Route: 048
     Dates: start: 20100514
  13. CEFAZOLIN SODIUM [Concomitant]
     Dosage: 3 DF, UNK
     Route: 048
     Dates: end: 20100602
  14. LEVOFLOXACIN [Concomitant]
     Dosage: 1 DF, UNK
     Route: 048
  15. LASIX [Concomitant]
     Dosage: 1 DF, UNK
     Route: 048
     Dates: start: 20100325, end: 20100506
  16. LEVOFLOXACIN [Concomitant]
     Dosage: 1 DF, UNK
     Route: 048
     Dates: end: 20100610
  17. FOSMICIN [Concomitant]
     Dosage: 3 DF, UNK
     Route: 048
     Dates: start: 20100514, end: 20100526

REACTIONS (12)
  - CARDIAC FAILURE [None]
  - SUPRAVENTRICULAR TACHYCARDIA [None]
  - ERYTHEMA [None]
  - UPPER RESPIRATORY TRACT INFECTION [None]
  - ARRHYTHMIA [None]
  - SKIN INDURATION [None]
  - DIPLOPIA [None]
  - ANAEMIA [None]
  - GLOSSITIS [None]
  - BLOOD CREATININE INCREASED [None]
  - PAIN [None]
  - DIARRHOEA [None]
